FAERS Safety Report 5662225-7 (Version None)
Quarter: 2008Q1

REPORT INFORMATION
  Report Type: 
  Country: None (occurrence: None)
  Receive Date: 20080312
  Receipt Date: 20080129
  Transmission Date: 20080703
  Serious: Yes (Hospitalization, Disabling)
  Sender: FDA-Public Use
  Company Number: DE-PFIZER INC-2006086148

PATIENT
  Sex: Male
  Weight: 117 kg

DRUGS (4)
  1. SU-011,248 [Suspect]
     Indication: METASTATIC RENAL CELL CARCINOMA
     Dosage: DAILY DOSE:37.5MG
     Route: 048
     Dates: start: 20060519, end: 20060708
  2. BISOPROLOL FUMARATE [Concomitant]
     Route: 048
  3. FLUVASTATIN [Concomitant]
     Route: 048
  4. ALLOPURINOL [Concomitant]
     Route: 048

REACTIONS (2)
  - MACULAR OEDEMA [None]
  - VISUAL DISTURBANCE [None]
